FAERS Safety Report 14202838 (Version 3)
Quarter: 2018Q3

REPORT INFORMATION
  Report Type: Spontaneous
  Country: NL (occurrence: NL)
  Receive Date: 20171119
  Receipt Date: 20180724
  Transmission Date: 20181010
  Serious: Yes (Other)
  Sender: FDA-Public Use
  Company Number: NL-TERSERA THERAPEUTICS, LLC-2034597

PATIENT
  Sex: Male

DRUGS (2)
  1. ZYTIGA [Concomitant]
     Active Substance: ABIRATERONE ACETATE
     Route: 065
     Dates: start: 20170510
  2. ZOLADEX [Suspect]
     Active Substance: GOSERELIN ACETATE
     Indication: PROSTATE CANCER
     Route: 058
     Dates: start: 20170301

REACTIONS (7)
  - Hypoaesthesia [Unknown]
  - Alopecia [Unknown]
  - Nail disorder [Unknown]
  - Malignant neoplasm progression [Unknown]
  - Joint swelling [Unknown]
  - Fatigue [Unknown]
  - Condition aggravated [Unknown]
